FAERS Safety Report 21651217 (Version 1)
Quarter: 2022Q4

REPORT INFORMATION
  Report Type: Spontaneous
  Country: HR (occurrence: HR)
  Receive Date: 20221128
  Receipt Date: 20221128
  Transmission Date: 20230113
  Serious: Yes (Other)
  Sender: FDA-Public Use
  Company Number: None

PATIENT
  Sex: Male

DRUGS (4)
  1. ZOLPIDEM TARTRATE [Suspect]
     Active Substance: ZOLPIDEM TARTRATE
     Dosage: 2 DF, QD
     Route: 048
     Dates: start: 202210, end: 202210
  2. METHADONE HYDROCHLORIDE [Suspect]
     Active Substance: METHADONE HYDROCHLORIDE
     Dosage: 2 ML, QD
     Route: 048
     Dates: start: 202210, end: 202210
  3. DIAZEPAM [Suspect]
     Active Substance: DIAZEPAM
     Dosage: 4 DF, QD
     Route: 048
     Dates: start: 202210, end: 202210
  4. QUETIAPINE FUMARATE [Suspect]
     Active Substance: QUETIAPINE FUMARATE
     Dosage: 2 DF, QD
     Route: 048
     Dates: start: 202210, end: 202210

REACTIONS (4)
  - Sinus tachycardia [Unknown]
  - Tachycardia [Unknown]
  - Drug abuse [Unknown]
  - Somnolence [Unknown]

NARRATIVE: CASE EVENT DATE: 20221001
